FAERS Safety Report 12321554 (Version 1)
Quarter: 2016Q2

REPORT INFORMATION
  Report Type: Spontaneous
  Country: US (occurrence: US)
  Receive Date: 20160502
  Receipt Date: 20160502
  Transmission Date: 20160815
  Serious: Yes (Life-Threatening, Hospitalization)
  Sender: FDA-Public Use
  Company Number: US-STRIDES ARCOLAB LIMITED-2016SP002701

PATIENT

DRUGS (1)
  1. BENZONATATE. [Suspect]
     Active Substance: BENZONATATE
     Indication: COUGH
     Dosage: 12 TABLETS
     Route: 048

REACTIONS (16)
  - Ventricular fibrillation [Recovered/Resolved]
  - Seizure [Recovered/Resolved]
  - Blood glucose increased [Recovered/Resolved]
  - Memory impairment [Recovered/Resolved]
  - Overdose [Recovered/Resolved]
  - Coma scale abnormal [Recovered/Resolved]
  - Somnolence [Recovered/Resolved]
  - Unresponsive to stimuli [Recovered/Resolved]
  - Apnoea [Recovered/Resolved]
  - Pulse absent [Recovered/Resolved]
  - Hypokalaemia [Recovered/Resolved]
  - Hypomagnesaemia [Recovered/Resolved]
  - Dizziness [Recovered/Resolved]
  - Nausea [Recovered/Resolved]
  - Pneumothorax [Recovered/Resolved]
  - Cardiac arrest [Recovered/Resolved]
